FAERS Safety Report 6091698-3 (Version None)
Quarter: 2009Q1

REPORT INFORMATION
  Report Type: 
  Country: None (occurrence: None)
  Receive Date: 20090225
  Receipt Date: 20080409
  Transmission Date: 20090719
  Serious: No
  Sender: FDA-Public Use
  Company Number: A0723227A

PATIENT
  Sex: Female

DRUGS (4)
  1. VALTREX [Suspect]
     Indication: DRUG USE FOR UNKNOWN INDICATION
     Route: 048
  2. TYLENOL (CAPLET) [Concomitant]
  3. ALEVE [Concomitant]
     Route: 048
  4. BENADRYL [Concomitant]
     Route: 048

REACTIONS (1)
  - DRUG SCREEN FALSE POSITIVE [None]
